FAERS Safety Report 7100290-0 (Version None)
Quarter: 2010Q4

REPORT INFORMATION
  Report Type: 
  Country: None (occurrence: None)
  Receive Date: 20101112
  Receipt Date: 20101101
  Transmission Date: 20110411
  Serious: Yes (Hospitalization, Other)
  Sender: FDA-Public Use
  Company Number: US-AMGEN-QUU437732

PATIENT

DRUGS (2)
  1. EPOGEN [Suspect]
     Indication: DIALYSIS
     Dosage: 8000 IU, UNK
  2. EPOGEN [Suspect]
     Dates: start: 20020101

REACTIONS (8)
  - CONVULSION [None]
  - DYSPNOEA [None]
  - FALL [None]
  - HAEMOGLOBIN DECREASED [None]
  - HIP FRACTURE [None]
  - HOSPITALISATION [None]
  - HYPERHIDROSIS [None]
  - THERAPEUTIC RESPONSE DECREASED [None]
